FAERS Safety Report 8190573-8 (Version None)
Quarter: 2012Q1

REPORT INFORMATION
  Report Type: 
  Country: None (occurrence: None)
  Receive Date: 20120307
  Receipt Date: 20120301
  Transmission Date: 20120608
  Serious: Yes (Other)
  Sender: FDA-Public Use
  Company Number: US-ROCHE-1045091

PATIENT
  Sex: Female

DRUGS (2)
  1. PEGASYS [Suspect]
     Indication: HEPATITIS C
     Dates: start: 20111125
  2. RIBAVIRIN [Suspect]
     Indication: HEPATITIS C
     Dates: start: 20111125

REACTIONS (4)
  - FATIGUE [None]
  - DIZZINESS [None]
  - BLOOD TEST ABNORMAL [None]
  - RENAL DISORDER [None]
